FAERS Safety Report 9449599 (Version 1)
Quarter: 2013Q3

REPORT INFORMATION
  Report Type: Spontaneous
  Country: US (occurrence: US)
  Receive Date: 20130809
  Receipt Date: 20130809
  Transmission Date: 20140515
  Serious: No
  Sender: FDA-Public Use
  Company Number: US-PFIZER INC-2013228257

PATIENT
  Sex: Female

DRUGS (2)
  1. CELEBREX [Suspect]
     Indication: INFLAMMATION
     Dosage: UNK
  2. CELEBREX [Suspect]
     Indication: TENDONITIS

REACTIONS (4)
  - Drug effect delayed [Unknown]
  - Local swelling [Unknown]
  - Pain in extremity [Unknown]
  - Tendonitis [Unknown]
